FAERS Safety Report 9048658 (Version 2)
Quarter: 2013Q1

REPORT INFORMATION
  Report Type: Spontaneous
  Country: US (occurrence: US)
  Receive Date: 20130204
  Receipt Date: 20130305
  Transmission Date: 20140127
  Serious: No
  Sender: FDA-Public Use
  Company Number: US-AMGEN-USASP2013000351

PATIENT
  Age: 31 Year
  Sex: Female

DRUGS (4)
  1. ENBREL [Suspect]
     Indication: PSORIASIS
     Dosage: 50 MG, BIWEEKLY
     Route: 058
     Dates: start: 20121205, end: 20130103
  2. DERMA SMOOTH FS [Concomitant]
     Indication: PSORIASIS
     Dosage: UNK UNK, QD
     Route: 061
     Dates: start: 20120921
  3. TRIAMCINOLONE ACETONIDE [Concomitant]
     Indication: PSORIASIS
     Dosage: 0.05 %, UNK
     Route: 061
     Dates: start: 20120921
  4. VALTREX [Concomitant]
     Indication: ORAL HERPES
     Dosage: 100/50 MG, UNK
     Route: 048

REACTIONS (5)
  - Oropharyngeal pain [Not Recovered/Not Resolved]
  - Cough [Recovered/Resolved]
  - Nasal congestion [Recovered/Resolved]
  - Fatigue [Recovered/Resolved]
  - Nasopharyngitis [Recovered/Resolved]
